FAERS Safety Report 5441873-3 (Version None)
Quarter: 2007Q3

REPORT INFORMATION
  Report Type: 
  Country: None (occurrence: None)
  Receive Date: 20070830
  Receipt Date: 20070830
  Transmission Date: 20080115
  Serious: Yes (Hospitalization)
  Sender: FDA-Public Use
  Company Number: None

PATIENT
  Age: 57 Year
  Sex: Male
  Weight: 66.8 kg

DRUGS (10)
  1. PHENYTOIN SODIUM CAP [Suspect]
     Indication: TREMOR
     Dosage: 300 MG AT BEDTIME PO
     Route: 048
  2. TRAZODONE HCL [Concomitant]
  3. REFRESH OINTMENT [Concomitant]
  4. NOROXIN [Concomitant]
  5. LISINOPRIL/HYDROCHLORTHIAZINE [Concomitant]
  6. GEODON [Concomitant]
  7. ARTIFICIAL TEARS [Concomitant]
  8. FLOMAX [Concomitant]
  9. DESONIDE [Concomitant]
  10. LORAZEPAM [Concomitant]

REACTIONS (5)
  - COORDINATION ABNORMAL [None]
  - DRUG TOXICITY [None]
  - FALL [None]
  - INCORRECT DOSE ADMINISTERED [None]
  - STUPOR [None]
